FAERS Safety Report 4368825-9 (Version None)
Quarter: 2004Q2

REPORT INFORMATION
  Report Type: 
  Country: None (occurrence: None)
  Receive Date: 20040528
  Receipt Date: 20040514
  Transmission Date: 20050107
  Serious: Yes (Hospitalization)
  Sender: FDA-Public Use
  Company Number: 2004IM000455

PATIENT
  Age: 74 Year
  Sex: Male
  Weight: 83 kg

DRUGS (5)
  1. ACTIMMUNE [Suspect]
     Indication: INTERSTITIAL LUNG DISEASE
     Dosage: 200 UG/TIW;SUBCUTANEOUS
     Route: 058
     Dates: start: 20031219, end: 20040302
  2. ZOCOR [Concomitant]
  3. PREDNISONE [Concomitant]
  4. INSULIN [Concomitant]
  5. CARDIZEM [Concomitant]

REACTIONS (6)
  - BACK PAIN [None]
  - BLADDER OBSTRUCTION [None]
  - LUNG NEOPLASM MALIGNANT [None]
  - PNEUMONIA [None]
  - TACHYCARDIA [None]
  - TACHYPNOEA [None]
